FAERS Safety Report 8842372 (Version 2)
Quarter: 2012Q4

REPORT INFORMATION
  Report Type: 
  Country: US (occurrence: None)
  Receive Date: 20121016
  Receipt Date: 20121017
  Transmission Date: 20130627
  Serious: Yes (Hospitalization, Disabling)
  Sender: FDA-Public Use
  Company Number: None

PATIENT
  Age: 84 Year
  Sex: Female
  Weight: 54.43 kg

DRUGS (1)
  1. AVASTIN [Suspect]

REACTIONS (2)
  - Meningitis [None]
  - Suspected transmission of an infectious agent via product [None]
